FAERS Safety Report 8224632-8 (Version None)
Quarter: 2012Q1

REPORT INFORMATION
  Report Type: 
  Country: None (occurrence: None)
  Receive Date: 20120320
  Receipt Date: 20120320
  Transmission Date: 20120608
  Serious: No
  Sender: FDA-Public Use
  Company Number: None

PATIENT
  Age: 36 Year
  Sex: Male
  Weight: 65.7716 kg

DRUGS (6)
  1. ZYRTEC [Concomitant]
  2. SYMBICORT [Concomitant]
  3. ALBUTEROL [Concomitant]
  4. LENSCALE ALLERGENIC EXTRACT ALK LOT G14992, IF85312 [Suspect]
     Indication: ASTHMA
     Dosage: WEEKLY
     Dates: start: 20091026, end: 20111024
  5. LENSCALE ALLERGENIC EXTRACT ALK LOT G14992, IF85312 [Suspect]
     Indication: RHINITIS ALLERGIC
     Dosage: WEEKLY
     Dates: start: 20091026, end: 20111024
  6. ASTEMO [Concomitant]

REACTIONS (4)
  - URTICARIA [None]
  - SWELLING FACE [None]
  - LIP SWELLING [None]
  - RESPIRATORY DISTRESS [None]
